FAERS Safety Report 25282256 (Version 1)
Quarter: 2025Q2

REPORT INFORMATION
  Report Type: Spontaneous
  Country: US (occurrence: US)
  Receive Date: 20250508
  Receipt Date: 20250508
  Transmission Date: 20250717
  Serious: Yes (Hospitalization, Other)
  Sender: BAXTER
  Company Number: US-BAXTER-2025BAX014647

PATIENT
  Sex: Female

DRUGS (1)
  1. CLINOLIPID [Suspect]
     Active Substance: OLIVE OIL\SOYBEAN OIL
     Indication: Nutritional supplementation
     Route: 065

REACTIONS (5)
  - Large intestinal obstruction [Unknown]
  - Flushing [Unknown]
  - Rash [Recovered/Resolved]
  - Back pain [Unknown]
  - Dyspnoea [Unknown]
